FAERS Safety Report 9462097 (Version 1)
Quarter: 2013Q3

REPORT INFORMATION
  Report Type: Spontaneous
  Country: US (occurrence: None)
  Receive Date: 20130815
  Receipt Date: 20130815
  Transmission Date: 20140515
  Serious: Yes (Hospitalization)
  Sender: FDA-Public Use
  Company Number: None

PATIENT
  Age: 83 Year
  Sex: Female
  Weight: 74.3 kg

DRUGS (17)
  1. XARELTO [Suspect]
     Indication: ATRIAL FIBRILLATION
     Route: 048
  2. CALCIUM CITRATE [Concomitant]
  3. ARED [Concomitant]
  4. DENOSUMAB [Concomitant]
  5. HYDRALAZINE [Concomitant]
  6. ASCORBIC ACID [Concomitant]
  7. MVI [Concomitant]
  8. VERAPAMIL [Concomitant]
  9. MIRALAX [Concomitant]
  10. SIMVASTATIN [Concomitant]
  11. GLIPIZIDE [Concomitant]
  12. GABAPENTIN [Concomitant]
  13. VALSARTAN [Concomitant]
  14. LASIX [Concomitant]
  15. CARVEDILOL [Concomitant]
  16. ANASTROZOLE [Concomitant]
  17. ALLOPURINOL [Concomitant]

REACTIONS (6)
  - Abdominal pain [None]
  - Retroperitoneal haemorrhage [None]
  - Renal failure acute [None]
  - Blood pressure abnormal [None]
  - Haemoglobin abnormal [None]
  - Haematocrit abnormal [None]
